FAERS Safety Report 5673514-4 (Version None)
Quarter: 2008Q1

REPORT INFORMATION
  Report Type: 
  Country: None (occurrence: None)
  Receive Date: 20080319
  Receipt Date: 20080313
  Transmission Date: 20080703
  Serious: Yes (Other)
  Sender: FDA-Public Use
  Company Number: RO-ABBOTT-07P-135-0422564-00

PATIENT
  Age: 1 Day

DRUGS (1)
  1. KALETRA [Suspect]
     Indication: DRUG EXPOSURE DURING PREGNANCY
     Route: 064

REACTIONS (2)
  - CONGENITAL HIV INFECTION [None]
  - DRUG EXPOSURE DURING PREGNANCY [None]
